FAERS Safety Report 21153010 (Version 1)
Quarter: 2022Q3

REPORT INFORMATION
  Report Type: Spontaneous
  Country: US (occurrence: US)
  Receive Date: 20220730
  Receipt Date: 20220730
  Transmission Date: 20221027
  Serious: No
  Sender: FDA-Public Use
  Company Number: US-SANOFI-01205247

PATIENT
  Age: 64 Year
  Sex: Female

DRUGS (3)
  1. DUPIXENT [Suspect]
     Active Substance: DUPILUMAB
     Indication: Rash
  2. DUPIXENT [Suspect]
     Active Substance: DUPILUMAB
     Indication: Blister
  3. DUPIXENT [Suspect]
     Active Substance: DUPILUMAB
     Indication: Hyperkeratosis

REACTIONS (1)
  - Product use in unapproved indication [Unknown]
